FAERS Safety Report 8810361 (Version 1)
Quarter: 2012Q4

REPORT INFORMATION
  Report Type: 
  Country: US (occurrence: US)
  Receive Date: 20120926
  Receipt Date: 20120926
  Transmission Date: 20130627
  Serious: Yes (Hospitalization)
  Sender: FDA-Public Use
  Company Number: US-009507513-1209USA009323

PATIENT
  Age: 22 Year
  Sex: Male

DRUGS (1)
  1. SAPHRIS [Suspect]
     Indication: SCHIZOPHRENIA
     Dosage: 10 mg, bid
     Route: 060
     Dates: start: 201205, end: 20120915

REACTIONS (2)
  - Choking sensation [Recovering/Resolving]
  - Product taste abnormal [Unknown]
